FAERS Safety Report 22617222 (Version 1)
Quarter: 2023Q2

REPORT INFORMATION
  Report Type: Spontaneous
  Country: CZ (occurrence: None)
  Receive Date: 20230620
  Receipt Date: 20230620
  Transmission Date: 20230722
  Serious: Yes (Other)
  Sender: FDA-Public Use
  Company Number: CZ-Orion Corporation ORION PHARMA-TREX2023-0147

PATIENT
  Age: 27 Year
  Sex: Male

DRUGS (3)
  1. METHOTREXATE [Suspect]
     Active Substance: METHOTREXATE
     Indication: B-cell type acute leukaemia
     Dosage: THE DOSAGE WAS REDUCED, TREATMENT TERMINATED IN AUG 2021 (AFTER 18 MONTHS) DUE TO DESCRIBED PROBLEMS
     Dates: start: 202003, end: 202108
  2. MERCAPTOPURINE [Suspect]
     Active Substance: MERCAPTOPURINE
     Indication: B-cell type acute leukaemia
     Dosage: THE DOSAGE WAS REDUCED, TREATMENT TERMINATED IN AUG 2021 (AFTER 18 MONTHS) DUE TO DESCRIBED PROBLEMS
     Dates: start: 202003, end: 202108
  3. INOTUZUMAB OZOGAMICIN [Concomitant]
     Active Substance: INOTUZUMAB OZOGAMICIN
     Dosage: RELAPSE TREATMENT INITIATED IN 3 CYCLES
     Dates: start: 20220518

REACTIONS (5)
  - Hepatotoxicity [Recovered/Resolved]
  - Myelosuppression [Recovered/Resolved]
  - Drug intolerance [Recovered/Resolved]
  - Transaminases increased [Recovered/Resolved]
  - Off label use [Unknown]
